FAERS Safety Report 8327270-1 (Version None)
Quarter: 2012Q2

REPORT INFORMATION
  Report Type: 
  Country: None (occurrence: None)
  Receive Date: 20120502
  Receipt Date: 20120419
  Transmission Date: 20120825
  Serious: Yes (Hospitalization)
  Sender: FDA-Public Use
  Company Number: DE-AMGEN-DEUCT2012019777

PATIENT
  Age: 26 Year
  Sex: Female
  Weight: 99 kg

DRUGS (5)
  1. ETANERCEPT [Suspect]
     Indication: PSORIATIC ARTHROPATHY
  2. JULIETTE [Concomitant]
     Dosage: UNK
  3. CLOBETASOL PROPIONATE [Concomitant]
     Dosage: UNK
  4. ETANERCEPT [Suspect]
     Indication: PSORIASIS
     Dosage: 50 MG, WEEKLY
     Dates: start: 20091102, end: 20111013
  5. BETAMETHASONE [Concomitant]
     Dosage: UNK

REACTIONS (2)
  - BILIARY TRACT OPERATION [None]
  - CHEMICAL PERITONITIS [None]
